FAERS Safety Report 4757680-0 (Version None)
Quarter: 2005Q3

REPORT INFORMATION
  Report Type: 
  Country: None (occurrence: None)
  Receive Date: 20050831
  Receipt Date: 20050824
  Transmission Date: 20060218
  Serious: Yes (Other)
  Sender: FDA-Public Use
  Company Number: 2005JP001635

PATIENT

DRUGS (4)
  1. CEFAZOLIN [Suspect]
     Indication: INFECTION PROPHYLAXIS
  2. FLOMOXEF [Suspect]
  3. PIPERACILLIN SODIUM [Suspect]
  4. FOSFOMYCIN [Suspect]

REACTIONS (10)
  - ASPHYXIA [None]
  - DRUG EXPOSURE DURING PREGNANCY [None]
  - FOETAL DISORDER [None]
  - LUNG DISORDER [None]
  - PREMATURE BABY [None]
  - PSEUDOMONAL SEPSIS [None]
  - PULMONARY HYPERTENSION [None]
  - RESPIRATORY TRACT IRRITATION [None]
  - SEPSIS [None]
  - SEPSIS NEONATAL [None]
